FAERS Safety Report 8425201-7 (Version None)
Quarter: 2012Q2

REPORT INFORMATION
  Report Type: 
  Country: None (occurrence: None)
  Receive Date: 20120529
  Receipt Date: 20120518
  Transmission Date: 20120825
  Serious: Yes (Death, Life-Threatening, Hospitalization, Other)
  Sender: FDA-Public Use
  Company Number: P0579

PATIENT
  Age: 83 Year
  Sex: Male

DRUGS (21)
  1. FUROSEMIDE [Concomitant]
  2. ALBUTEROL [Concomitant]
  3. FISH OIL (FISH OIL) [Concomitant]
  4. NITROGLYCERIN [Concomitant]
  5. ROSUVASTATIN [Concomitant]
  6. SIPULEUCEL-T (SIPULEUCEL-T) (INFUSION) [Suspect]
     Indication: PROSTATE CANCER
     Dosage: INTRAVENOUS
     Route: 042
     Dates: start: 20120420, end: 20120420
  7. CALCIUM CITRATE (CALCIUM CITRATE) [Concomitant]
  8. CHOLECALCIFEROL + VITAMIN D-3 (COLECALCIFEROL) [Concomitant]
  9. LEUPROLIDE ACETATE [Concomitant]
  10. OMEPRAZOLE [Concomitant]
  11. OXYCODONE HCL [Concomitant]
  12. ACETAMINOPHEN [Concomitant]
  13. LISINOPRIL [Concomitant]
  14. ASCORBIC ACID [Concomitant]
  15. SUCRALFATE [Concomitant]
  16. METFFORMIN HYDROCHLORIDE [Concomitant]
  17. AMLODIPINE [Concomitant]
  18. DIPHENHYDRAMINE HCL [Concomitant]
  19. ZOLEDRONIC ACID (DOLEDRONIC ACID) [Concomitant]
  20. LISINOPRIL [Concomitant]
  21. MULTIVITAMIN [Concomitant]

REACTIONS (9)
  - ANAEMIA [None]
  - PEPTIC ULCER [None]
  - THROMBOCYTOPENIA [None]
  - CARDIOMEGALY [None]
  - HAEMATURIA [None]
  - CYSTITIS RADIATION [None]
  - GASTROINTESTINAL HAEMORRHAGE [None]
  - DEVICE OCCLUSION [None]
  - PNEUMONIA [None]
